FAERS Safety Report 6850332-2 (Version None)
Quarter: 2010Q3

REPORT INFORMATION
  Report Type: 
  Country: None (occurrence: None)
  Receive Date: 20100716
  Receipt Date: 20100706
  Transmission Date: 20110219
  Serious: Yes (Death)
  Sender: FDA-Public Use
  Company Number: US-ABBOTT-10P-163-0654436-00

PATIENT
  Sex: Male

DRUGS (1)
  1. ZEMPLAR [Suspect]
     Indication: NEPHROPATHY
     Dates: end: 20090221

REACTIONS (3)
  - DYSPNOEA [None]
  - LUNG DISORDER [None]
  - RENAL DISORDER [None]
